FAERS Safety Report 4543080-5 (Version None)
Quarter: 2004Q4

REPORT INFORMATION
  Report Type: 
  Country: None (occurrence: None)
  Receive Date: 20041229
  Receipt Date: 20041229
  Transmission Date: 20050328
  Serious: Yes (Death)
  Sender: FDA-Public Use
  Company Number: None

PATIENT
  Age: 56 Year
  Sex: Male
  Weight: 93.441 kg

DRUGS (2)
  1. CELEBREX [Suspect]
     Dosage: ONE DAILY
     Dates: start: 20041119, end: 20041203
  2. MELLA LUCA [Concomitant]

REACTIONS (2)
  - GASTRITIS [None]
  - MYOCARDIAL INFARCTION [None]
